FAERS Safety Report 16126126 (Version 3)
Quarter: 2019Q4

REPORT INFORMATION
  Report Type: Report from Study
  Country: US (occurrence: US)
  Receive Date: 20190328
  Receipt Date: 20191014
  Transmission Date: 20200122
  Serious: Yes (Other)
  Sender: FDA-Public Use
  Company Number: US-ROCHE-2284644

PATIENT
  Sex: Male
  Weight: 66.28 kg

DRUGS (4)
  1. NORCO [Concomitant]
     Active Substance: ACETAMINOPHEN\HYDROCODONE BITARTRATE
     Dosage: ONGOING : UNKNOWN
     Route: 065
  2. KEPPRA [Concomitant]
     Active Substance: LEVETIRACETAM
     Dosage: ONGOING : UNKNOWN
     Route: 065
  3. HCTZ [Concomitant]
     Active Substance: HYDROCHLOROTHIAZIDE
     Dosage: ONGOING : UNKNOWN
     Route: 065
  4. OCREVUS [Suspect]
     Active Substance: OCRELIZUMAB
     Indication: SECONDARY PROGRESSIVE MULTIPLE SCLEROSIS
     Dosage: ONGOING : UNKNOWN
     Route: 065
     Dates: start: 20180910

REACTIONS (7)
  - Fall [Unknown]
  - Intentional product use issue [Unknown]
  - Off label use [Unknown]
  - Alpha-1 anti-trypsin deficiency [Unknown]
  - Therapeutic response shortened [Unknown]
  - Joint instability [Recovered/Resolved]
  - Anaphylactic reaction [Unknown]
